FAERS Safety Report 18425630 (Version 1)
Quarter: 2020Q4

REPORT INFORMATION
  Report Type: Report from Study
  Country: NL (occurrence: NL)
  Receive Date: 20201026
  Receipt Date: 20201026
  Transmission Date: 20210114
  Serious: Yes (Other)
  Sender: FDA-Public Use
  Company Number: NL-TEVA-2020-NL-1829476

PATIENT
  Age: 42 Year
  Sex: Female
  Weight: 88 kg

DRUGS (2)
  1. AJOVY [Suspect]
     Active Substance: FREMANEZUMAB-VFRM
     Indication: MIGRAINE PROPHYLAXIS
     Route: 065
     Dates: start: 20200710, end: 20200902
  2. COLCHICINE. [Concomitant]
     Active Substance: COLCHICINE
     Dosage: 1 MILLIGRAM DAILY; FUTURE STOP DATE REPORTED AS 07-DEC-2020

REACTIONS (1)
  - Carditis [Recovered/Resolved]

NARRATIVE: CASE EVENT DATE: 20200811
